FAERS Safety Report 16127275 (Version 2)
Quarter: 2019Q2

REPORT INFORMATION
  Report Type: Report from Study
  Country: US (occurrence: US)
  Receive Date: 20190328
  Receipt Date: 20190412
  Transmission Date: 20190711
  Serious: Yes (Hospitalization, Other)
  Sender: FDA-Public Use
  Company Number: PHEH2019US012559

PATIENT
  Age: 62 Year
  Sex: Male
  Weight: 74.84 kg

DRUGS (11)
  1. FLOMAX [Concomitant]
     Active Substance: TAMSULOSIN HYDROCHLORIDE
     Indication: PRODUCT USED FOR UNKNOWN INDICATION
     Dosage: 0.4 MG, QD
     Route: 048
  2. MORPHINE [Concomitant]
     Active Substance: MORPHINE
     Indication: PAIN
     Dosage: 20 MG/ML (100 MG/5ML, CONCENTRATED SOL), UNK (0.5 ML, 10 MG TOTAL EVRY 2 HRS, AS NEEDED FOR PAIN)
     Route: 048
  3. GILENYA [Suspect]
     Active Substance: FINGOLIMOD HYDROCHLORIDE
     Indication: PRODUCT USED FOR UNKNOWN INDICATION
     Dosage: 0.5 MG, QD
     Route: 048
  4. KEPPRA [Concomitant]
     Active Substance: LEVETIRACETAM
     Indication: SEIZURE PROPHYLAXIS
     Dosage: 1000 MG, BID
     Route: 048
  5. DECADRON [Concomitant]
     Active Substance: DEXAMETHASONE
     Indication: PRODUCT USED FOR UNKNOWN INDICATION
     Dosage: 4 MG, TID (FOR 2 DAYS)
     Route: 065
  6. ZOCOR [Concomitant]
     Active Substance: SIMVASTATIN
     Dosage: 40 UNK, UNK
     Route: 048
  7. DECADRON [Concomitant]
     Active Substance: DEXAMETHASONE
     Dosage: 2 MG, BID (FOR 2 DAYS)
     Route: 065
  8. LIORESAL [Concomitant]
     Active Substance: BACLOFEN
     Indication: PRODUCT USED FOR UNKNOWN INDICATION
     Dosage: 10 MG, TID
     Route: 048
  9. DECADRON [Concomitant]
     Active Substance: DEXAMETHASONE
     Dosage: 4 MG, BID (FOR 2 DAYS)
     Route: 065
  10. ZOCOR [Concomitant]
     Active Substance: SIMVASTATIN
     Indication: PRODUCT USED FOR UNKNOWN INDICATION
     Dosage: 10 MG, QD (AT BEDTIME)
     Route: 048
  11. DECADRON [Concomitant]
     Active Substance: DEXAMETHASONE
     Dosage: 1 MG, BID (UNTIL SEEN BY NEUROLOGIST)
     Route: 065

REACTIONS (10)
  - Chronic obstructive pulmonary disease [Unknown]
  - Metastases to central nervous system [Unknown]
  - Acute kidney injury [Unknown]
  - Essential hypertension [Unknown]
  - Brain neoplasm malignant [Unknown]
  - Asthenia [Unknown]
  - Aphasia [Unknown]
  - Lung neoplasm malignant [Unknown]
  - Lung carcinoma cell type unspecified stage IV [Unknown]
  - Gait disturbance [Unknown]

NARRATIVE: CASE EVENT DATE: 20190304
